FAERS Safety Report 6934429-4 (Version None)
Quarter: 2010Q3

REPORT INFORMATION
  Report Type: 
  Country: None (occurrence: None)
  Receive Date: 20100820
  Receipt Date: 20100812
  Transmission Date: 20110219
  Serious: Yes (Life-Threatening, Hospitalization)
  Sender: FDA-Public Use
  Company Number: B0669619A

PATIENT
  Sex: Female

DRUGS (1)
  1. LAMICTAL [Suspect]
     Indication: MYOCLONIC EPILEPSY
     Route: 048
     Dates: start: 20090515, end: 20090604

REACTIONS (14)
  - DERMATITIS BULLOUS [None]
  - ENANTHEMA [None]
  - EYE DISORDER [None]
  - FACE OEDEMA [None]
  - FOLLICULITIS [None]
  - HEPATOCELLULAR INJURY [None]
  - MUCOSAL EROSION [None]
  - NIKOLSKY'S SIGN [None]
  - ODYNOPHAGIA [None]
  - PYREXIA [None]
  - RASH MACULO-PAPULAR [None]
  - SKIN EXFOLIATION [None]
  - TOXIC EPIDERMAL NECROLYSIS [None]
  - VOMITING [None]
